FAERS Safety Report 16289959 (Version 1)
Quarter: 2019Q2

REPORT INFORMATION
  Report Type: Spontaneous
  Country: US (occurrence: US)
  Receive Date: 20190507
  Receipt Date: 20190507
  Transmission Date: 20190711
  Serious: No
  Sender: FDA-Public Use
  Company Number: US-ARALEZ PHARMACEUTICALS R+D INC.-2019-ARA-001319

PATIENT
  Sex: Female
  Weight: 86.17 kg

DRUGS (17)
  1. VITAMIN D3 [Concomitant]
     Active Substance: CHOLECALCIFEROL
     Route: 048
  2. COENZYME Q10 [Concomitant]
     Active Substance: UBIDECARENONE
     Dosage: 300 MG, QD
     Route: 048
  3. ASPIRIN                            /00002701/ [Concomitant]
     Active Substance: ASPIRIN
     Dosage: 81 MG, QD
     Route: 048
  4. NORVASC [Concomitant]
     Active Substance: AMLODIPINE BESYLATE
     Dosage: 5 MG, QD
     Route: 048
  5. CALCIUM [Concomitant]
     Active Substance: CALCIUM
     Dosage: UNK, BID
     Route: 048
  6. PRILOSEC [Suspect]
     Active Substance: OMEPRAZOLE MAGNESIUM
     Indication: PRODUCT USED FOR UNKNOWN INDICATION
     Dosage: 20 MG, QD
     Route: 048
  7. ALBUTEROL SULFATE. [Concomitant]
     Active Substance: ALBUTEROL SULFATE
     Indication: CHRONIC OBSTRUCTIVE PULMONARY DISEASE
     Dosage: UNK, BID
     Route: 055
  8. FUROSEMIDE. [Concomitant]
     Active Substance: FUROSEMIDE
     Dosage: 20 MG, QD
     Route: 048
  9. ZOLOFT [Concomitant]
     Active Substance: SERTRALINE HYDROCHLORIDE
     Dosage: 25 MG, QD
     Route: 048
  10. CRESTOR [Suspect]
     Active Substance: ROSUVASTATIN CALCIUM
     Indication: PRODUCT USED FOR UNKNOWN INDICATION
     Dosage: UNK, QD
     Route: 048
  11. POTASSIUM [Concomitant]
     Active Substance: POTASSIUM
     Route: 048
  12. AVAPRO [Concomitant]
     Active Substance: IRBESARTAN
     Dosage: 150 MG, QD
     Route: 048
  13. PROAIR HFA [Concomitant]
     Active Substance: ALBUTEROL SULFATE
     Dosage: UNK, PRN
     Route: 055
  14. PROBIOTIC                          /06395501/ [Concomitant]
     Active Substance: BIFIDOBACTERIUM ANIMALIS LACTIS
     Route: 048
  15. TOPROL XL [Suspect]
     Active Substance: METOPROLOL SUCCINATE
     Indication: HYPERTENSION
     Dosage: 50 MG, BID
     Route: 048
  16. BEVESPI AEROSPHERE [Suspect]
     Active Substance: FORMOTEROL FUMARATE\GLYCOPYRROLATE
     Indication: CHRONIC OBSTRUCTIVE PULMONARY DISEASE
     Dosage: 2 DF, BID
     Route: 055
     Dates: start: 20190323
  17. ALEVE [Concomitant]
     Active Substance: NAPROXEN SODIUM
     Route: 048

REACTIONS (2)
  - Rash [Recovered/Resolved with Sequelae]
  - Inappropriate schedule of product administration [Unknown]
